FAERS Safety Report 4505876-5 (Version None)
Quarter: 2004Q4

REPORT INFORMATION
  Report Type: 
  Country: None (occurrence: None)
  Receive Date: 20041025
  Receipt Date: 20040310
  Transmission Date: 20050328
  Serious: Yes (Other)
  Sender: FDA-Public Use
  Company Number: US-JNJFOC-20040102087

PATIENT
  Age: 54 Year
  Sex: Female

DRUGS (7)
  1. REMICADE [Suspect]
     Indication: CROHN'S DISEASE
     Dosage: 5 MG/KG
  2. AZATHIOPINE (AZATHIOPRINE) [Concomitant]
  3. NAPROSYN [Concomitant]
  4. ASACOL [Concomitant]
  5. WELLBUTRIN [Concomitant]
  6. ESTRACE [Concomitant]
  7. TRAZADONE (TRAZODONE) [Concomitant]

REACTIONS (2)
  - BACK PAIN [None]
  - CHEST DISCOMFORT [None]
